FAERS Safety Report 20079209 (Version 1)
Quarter: 2021Q4

REPORT INFORMATION
  Report Type: Spontaneous
  Country: GB (occurrence: GB)
  Receive Date: 20211117
  Receipt Date: 20211117
  Transmission Date: 20220303
  Serious: Yes (Other)
  Sender: FDA-Public Use
  Company Number: GB-MHRA-TPP1312097C7267350YC1634656391887

PATIENT
  Age: 20 Year
  Sex: Female
  Weight: 51 kg

DRUGS (3)
  1. AMOXICILLIN [Suspect]
     Active Substance: AMOXICILLIN
     Indication: Product used for unknown indication
     Dosage: 500 MILLIGRAM
     Route: 065
     Dates: start: 20211019
  2. AMOXICILLIN [Concomitant]
     Active Substance: AMOXICILLIN
     Indication: Product used for unknown indication
     Dosage: 1 DOSAGE FORM, 3 TIMES A DAY(TAKE ONE 3 TIMES/DAY)
     Route: 065
     Dates: start: 20211013, end: 20211018
  3. DOXYCYCLINE [Concomitant]
     Active Substance: DOXYCYCLINE
     Indication: Product used for unknown indication
     Dosage: UNK(TWO NOW THEN ONE DAILY)
     Route: 065
     Dates: start: 20211019

REACTIONS (3)
  - Swelling of eyelid [Recovering/Resolving]
  - Dermatitis atopic [Recovering/Resolving]
  - Face oedema [Unknown]

NARRATIVE: CASE EVENT DATE: 20211019
